FAERS Safety Report 23516494 (Version 1)
Quarter: 2024Q1

REPORT INFORMATION
  Report Type: Spontaneous
  Country: US (occurrence: US)
  Receive Date: 20240213
  Receipt Date: 20240213
  Transmission Date: 20240409
  Serious: No
  Sender: FDA-Public Use
  Company Number: US-ALVOGEN-2023091520

PATIENT
  Sex: Female

DRUGS (1)
  1. OXYCODONE [Suspect]
     Active Substance: OXYCODONE\OXYCODONE HYDROCHLORIDE
     Indication: Product used for unknown indication
     Dosage: INSTANT RELEASE

REACTIONS (4)
  - Musculoskeletal discomfort [Unknown]
  - Withdrawal syndrome [Unknown]
  - Pain [Unknown]
  - Product availability issue [Unknown]
